FAERS Safety Report 9366580 (Version 2)
Quarter: 2013Q3

REPORT INFORMATION
  Report Type: Spontaneous
  Country: JP (occurrence: JP)
  Receive Date: 20130625
  Receipt Date: 20130725
  Transmission Date: 20140515
  Serious: Yes (Other)
  Sender: FDA-Public Use
  Company Number: JP-PFIZER INC-2013184414

PATIENT
  Age: 20 Year
  Sex: Male

DRUGS (6)
  1. MYCOPHENOLATE MOFETIL [Suspect]
     Indication: ACUTE GRAFT VERSUS HOST DISEASE
     Dosage: 25 MG/KG, DAY ADMINISTERED THREE TIMES A DAY
     Route: 048
  2. TACROLIMUS [Suspect]
     Indication: ACUTE GRAFT VERSUS HOST DISEASE
     Dosage: 1.5 MG, DAY PER BODY
     Route: 041
  3. TACROLIMUS [Suspect]
     Dosage: 5 MG, DAY
     Route: 048
  4. URSODEOXYCHOLIC ACID [Suspect]
     Indication: FUNGAL INFECTION
  5. CYCLOPHOSPHAMIDE [Suspect]
     Dosage: 120 MG/KG, UNK
  6. PREDNISOLONE [Suspect]
     Dosage: 1 MG/KG, UNK

REACTIONS (1)
  - Inappropriate antidiuretic hormone secretion [Recovered/Resolved]
